FAERS Safety Report 9129974 (Version 1)
Quarter: 2013Q1

REPORT INFORMATION
  Report Type: Report from Study
  Country: CA (occurrence: CA)
  Receive Date: 20130122
  Receipt Date: 20130122
  Transmission Date: 20140127
  Serious: Yes (Other)
  Sender: FDA-Public Use
  Company Number: CA-JNJFOC-20130107166

PATIENT
  Sex: Female
  Weight: 65 kg

DRUGS (4)
  1. REMICADE [Suspect]
     Indication: CROHN^S DISEASE
     Route: 042
     Dates: start: 20080811
  2. REMICADE [Suspect]
     Indication: CROHN^S DISEASE
     Dosage: 28TH INFUSION
     Route: 042
     Dates: start: 20130110
  3. METHOTREXATE [Concomitant]
     Route: 065
  4. PREDNISONE [Concomitant]
     Route: 065

REACTIONS (1)
  - Intestinal stenosis [Unknown]
